FAERS Safety Report 23198512 (Version 2)
Quarter: 2024Q2

REPORT INFORMATION
  Report Type: Spontaneous
  Country: CA (occurrence: CA)
  Receive Date: 20231117
  Receipt Date: 20240409
  Transmission Date: 20240716
  Serious: Yes (Other)
  Sender: FDA-Public Use
  Company Number: CA-ELI_LILLY_AND_COMPANY-CA202311003998

PATIENT
  Age: 15 Year
  Sex: Female

DRUGS (8)
  1. HUMATROPE [Suspect]
     Active Substance: SOMATROPIN
     Indication: Product used for unknown indication
     Dosage: UNK UNK, UNKNOWN
     Route: 065
  2. SOMATROPIN [Suspect]
     Active Substance: SOMATROPIN
     Indication: Growth hormone deficiency
     Dosage: 1350 UG, OTHER (7 TIMES PER WEEK)
     Route: 058
     Dates: start: 20230307, end: 202304
  3. SOMATROPIN [Suspect]
     Active Substance: SOMATROPIN
     Dosage: 1 MG, OTHER (7 TIMES PER DAY)
     Route: 058
     Dates: start: 202304
  4. SYNTHROID [Suspect]
     Active Substance: LEVOTHYROXINE SODIUM
     Indication: Product used for unknown indication
     Dosage: 500 NG, UNKNOWN
     Route: 065
  5. SYNTHROID [Suspect]
     Active Substance: LEVOTHYROXINE SODIUM
     Dosage: UNK, UNKNOWN (DOSE REDUCED)
     Route: 065
  6. ESTRADIOL [Concomitant]
     Active Substance: ESTRADIOL
     Indication: Product used for unknown indication
     Dosage: 1500 UG, DAILY
  7. PREDNISONE [Concomitant]
     Active Substance: PREDNISONE
     Indication: Product used for unknown indication
     Dosage: 4 MG, UNKNOWN (1.5MG IN AM AND 2.5MG IN PM)
  8. PROGESTERONE [Concomitant]
     Active Substance: PROGESTERONE
     Indication: Product used for unknown indication
     Dosage: 1 DOSAGE FORM, UNKNOWN

REACTIONS (7)
  - Hyperthyroidism [Recovered/Resolved]
  - Alopecia [Recovered/Resolved]
  - Decreased appetite [Recovered/Resolved]
  - Heart rate increased [Recovered/Resolved]
  - Malaise [Recovered/Resolved]
  - Nail bed disorder [Recovered/Resolved]
  - Insomnia [Recovered/Resolved]

NARRATIVE: CASE EVENT DATE: 20230101
